FAERS Safety Report 17990859 (Version 1)
Quarter: 2020Q3

REPORT INFORMATION
  Report Type: Spontaneous
  Country: NL (occurrence: NL)
  Receive Date: 20200707
  Receipt Date: 20200707
  Transmission Date: 20201103
  Serious: Yes (Other)
  Sender: FDA-Public Use
  Company Number: NL-MYLANLABS-2020M1060432

PATIENT
  Age: 43 Year
  Sex: Female

DRUGS (19)
  1. HYDROXOCOBALAMINE [Concomitant]
     Active Substance: HYDROXOCOBALAMIN
     Dosage: 1 DOSAGE FORM (M21INJ)
     Dates: start: 20130422
  2. PSYLLIUMVEZELS [Concomitant]
     Dosage: 6 GRAM, QD (2DD1)
     Route: 048
     Dates: start: 20150302
  3. IPRAMOL [Concomitant]
     Active Substance: ALBUTEROL SULFATE\IPRATROPIUM BROMIDE
     Dosage: 4 DOSAGE FORM, QD (4.1AM)
     Route: 055
     Dates: start: 20130827
  4. BETMIGA [Concomitant]
     Active Substance: MIRABEGRON
     Dosage: 50 MILLIGRAM, QD (1DD1)
     Route: 048
     Dates: start: 20150410
  5. VESICARE [Concomitant]
     Active Substance: SOLIFENACIN SUCCINATE
     Dosage: 10 MILLIGRAM, QD (1DD1)
     Route: 048
     Dates: start: 20111103
  6. CLINDAMYCIN. [Suspect]
     Active Substance: CLINDAMYCIN
     Indication: TOOTH DISORDER
     Dosage: 1800 MILLIGRAM, QD (3DD2)
     Route: 048
     Dates: start: 20160202
  7. PARACETAMOL [Concomitant]
     Active Substance: ACETAMINOPHEN
     Dosage: 2000 MILLIGRAM, QD (2DD1)
     Route: 048
     Dates: start: 20091030
  8. FOSTER [Concomitant]
     Active Substance: BECLOMETHASONE\FORMOTEROL
     Dosage: 2 DOSAGE FORM, QD (2DD1)
     Route: 055
     Dates: start: 20131202
  9. MAGNESIUMSULFAAT [Concomitant]
     Dosage: 1000 MILLIGRAM, QD (2DD1)
     Route: 048
     Dates: start: 20150205
  10. ESOMEPRAZOL                        /01479301/ [Concomitant]
     Active Substance: ESOMEPRAZOLE
     Dosage: 80 MILLIGRAM, QD (2DD1)
     Route: 048
     Dates: start: 20110117
  11. PIROXICAM. [Concomitant]
     Active Substance: PIROXICAM
     Dosage: 20 MILLIGRAM, QD (1DD1)
     Route: 048
     Dates: start: 20091215
  12. D?CURA [Concomitant]
     Dosage: 1 DOSAGE FORM (W62AM)
     Route: 048
     Dates: start: 20131025
  13. ETHINYLESTRADIOL/LEVONORGESTREL [Concomitant]
     Active Substance: ETHINYL ESTRADIOL\LEVONORGESTREL
     Dosage: 1 DOSAGE FORM, CYCLE
     Route: 048
     Dates: start: 20150703
  14. BACLOFEN. [Concomitant]
     Active Substance: BACLOFEN
     Dosage: 40 MILLIGRAM, QD (4DD1)
     Route: 048
     Dates: start: 20100222
  15. PREDNISOLON                        /00016201/ [Concomitant]
     Active Substance: PREDNISOLONE
     Dosage: 5 MILLIGRAM, QD (1DD1)
     Route: 048
     Dates: start: 20130912
  16. AZITROMYCINE [Concomitant]
     Active Substance: AZITHROMYCIN
     Dosage: 1 DOSAGE FORM (MWV1)
     Route: 048
     Dates: start: 20140226
  17. EPIPEN [Concomitant]
     Active Substance: EPINEPHRINE
     Dosage: 1 DOSAGE FORM (Z1INJ)
     Dates: start: 20131128
  18. SALBUTAMOL [Concomitant]
     Active Substance: ALBUTEROL
     Dosage: 300 MICROGRAM, PRN (3Z1IH)
     Route: 055
     Dates: start: 20101113
  19. CLONAZEPAM. [Concomitant]
     Active Substance: CLONAZEPAM
     Dosage: 3 MILLIGRAM, QD (3DD2)
     Route: 048
     Dates: start: 20090724

REACTIONS (3)
  - Epistaxis [Recovering/Resolving]
  - Wound [Recovering/Resolving]
  - Rectal haemorrhage [Recovering/Resolving]

NARRATIVE: CASE EVENT DATE: 20160211
